FAERS Safety Report 10575642 (Version 1)
Quarter: 2014Q4

REPORT INFORMATION
  Report Type: Spontaneous
  Country: US (occurrence: US)
  Receive Date: 20141111
  Receipt Date: 20141111
  Transmission Date: 20150529
  Serious: No
  Sender: FDA-Public Use
  Company Number: US-PFIZER INC-2014307400

PATIENT
  Age: 46 Year
  Sex: Female
  Weight: 89.34 kg

DRUGS (2)
  1. CLONIDINE. [Concomitant]
     Active Substance: CLONIDINE
     Indication: PANIC ATTACK
     Dosage: 4MG, 2X/DAY (2MG TABLET TWO IN MORNING AND TWO IN THE EVENING)
  2. EFFEXOR XR [Suspect]
     Active Substance: VENLAFAXINE HYDROCHLORIDE
     Indication: DEPRESSION
     Dosage: UNK, 2X/DAY (300MG IN MORNING AND 150MG IN EVENING)

REACTIONS (5)
  - Feeling abnormal [Unknown]
  - Nausea [Unknown]
  - Migraine [Unknown]
  - Malaise [Unknown]
  - Drug ineffective [Unknown]
